FAERS Safety Report 5138399-3 (Version None)
Quarter: 2006Q4

REPORT INFORMATION
  Report Type: 
  Country: None (occurrence: None)
  Receive Date: 20061030
  Receipt Date: 20060217
  Transmission Date: 20070319
  Serious: No
  Sender: FDA-Public Use
  Company Number: US-GLAXOSMITHKLINE-A0594175A

PATIENT
  Age: 46 Year
  Sex: Female

DRUGS (3)
  1. ADVAIR DISKUS 250/50 [Suspect]
     Indication: ASTHMA
     Dosage: 1PUFF TWICE PER DAY
     Route: 055
     Dates: start: 20050628
  2. DIOVAN [Concomitant]
  3. COMBIVENT [Concomitant]

REACTIONS (1)
  - DRY THROAT [None]
